FAERS Safety Report 6242078-9 (Version None)
Quarter: 2009Q2

REPORT INFORMATION
  Report Type: 
  Country: None (occurrence: None)
  Receive Date: 20090622
  Receipt Date: 20090615
  Transmission Date: 20091009
  Serious: Yes (Other)
  Sender: FDA-Public Use
  Company Number: 2009007314

PATIENT
  Age: 74 Year
  Sex: Male

DRUGS (2)
  1. TREANDA [Suspect]
     Dosage: INTRAVENOUS (NOT OTHERWISE SPECIFIED)
     Route: 042
  2. RITUXAN [Suspect]
     Dosage: INTRAVENOUS
     Route: 042

REACTIONS (3)
  - GAIT DISTURBANCE [None]
  - MEMORY IMPAIRMENT [None]
  - TREMOR [None]
